FAERS Safety Report 4942604-3 (Version None)
Quarter: 2006Q1

REPORT INFORMATION
  Report Type: 
  Country: None (occurrence: None)
  Receive Date: 20060310
  Receipt Date: 20060223
  Transmission Date: 20060701
  Serious: Yes (Death, Hospitalization)
  Sender: FDA-Public Use
  Company Number: COT_0409_2006

PATIENT
  Age: 67 Year
  Sex: Male
  Weight: 76.2043 kg

DRUGS (5)
  1. VENTAVIS [Suspect]
     Indication: PULMONARY HYPERTENSION
     Dosage: 5 MCG 6XD IH
     Route: 055
     Dates: start: 20050824
  2. TYLENOL (CAPLET) [Concomitant]
  3. TRACLEER [Concomitant]
  4. LASIX [Concomitant]
  5. OXYGEN [Concomitant]

REACTIONS (8)
  - BACTERIAL SEPSIS [None]
  - BRADYCARDIA [None]
  - CARDIO-RESPIRATORY ARREST [None]
  - HAEMATOCHEZIA [None]
  - IDIOPATHIC THROMBOCYTOPENIC PURPURA [None]
  - LUNG INFILTRATION [None]
  - PLEURAL EFFUSION [None]
  - RENAL FAILURE ACUTE [None]
